FAERS Safety Report 6268878-7 (Version None)
Quarter: 2009Q3

REPORT INFORMATION
  Report Type: 
  Country: None (occurrence: None)
  Receive Date: 20090709
  Receipt Date: 20090709
  Transmission Date: 20100115
  Serious: Yes (Hospitalization)
  Sender: FDA-Public Use
  Company Number: None

PATIENT
  Age: 38 Year
  Sex: Female
  Weight: 56.6996 kg

DRUGS (1)
  1. MONISTAT 1 COMBINATION PACK [Suspect]
     Indication: VULVOVAGINAL PRURITUS
     Dosage: COMBINATION INTRA-UTERINE
     Route: 015
     Dates: start: 20090703, end: 20090703

REACTIONS (2)
  - CONDITION AGGRAVATED [None]
  - VULVOVAGINAL PRURITUS [None]
